FAERS Safety Report 7530959-5 (Version None)
Quarter: 2011Q2

REPORT INFORMATION
  Report Type: 
  Country: None (occurrence: None)
  Receive Date: 20110531
  Receipt Date: 20110516
  Transmission Date: 20111010
  Serious: Yes (Hospitalization)
  Sender: FDA-Public Use
  Company Number: 2011MA005946

PATIENT
  Age: 6 Year
  Sex: Male

DRUGS (1)
  1. ACYCLOVIR [Suspect]
     Indication: HERPES ZOSTER
     Dosage: 400 MG;BID;IV
     Route: 042

REACTIONS (5)
  - DEHYDRATION [None]
  - ACIDOSIS [None]
  - RENAL FAILURE ACUTE [None]
  - FEBRILE NEUTROPENIA [None]
  - NEPHROPATHY TOXIC [None]
